FAERS Safety Report 10891393 (Version 3)
Quarter: 2016Q2

REPORT INFORMATION
  Report Type: Spontaneous
  Country: US (occurrence: US)
  Receive Date: 20150306
  Receipt Date: 20160512
  Transmission Date: 20160815
  Serious: Yes (Other)
  Sender: FDA-Public Use
  Company Number: US-UCBSA-2015001772

PATIENT
  Age: 40 Year
  Sex: Female

DRUGS (1)
  1. CIMZIA [Suspect]
     Active Substance: CERTOLIZUMAB PEGOL
     Indication: RHEUMATOID ARTHRITIS
     Dosage: 400 MG, EV 4 WEEKS, LOT NO: 120383, EXPIRY DATE: FEB-2016
     Dates: start: 20140221, end: 20151102

REACTIONS (3)
  - Upper respiratory tract infection [Not Recovered/Not Resolved]
  - Drug ineffective [Unknown]
  - Lymphadenopathy [Not Recovered/Not Resolved]

NARRATIVE: CASE EVENT DATE: 20141228
